FAERS Safety Report 7652729-X (Version None)
Quarter: 2011Q3

REPORT INFORMATION
  Report Type: 
  Country: None (occurrence: None)
  Receive Date: 20110802
  Receipt Date: 20110802
  Transmission Date: 20111222
  Serious: Yes (Hospitalization)
  Sender: FDA-Public Use
  Company Number: None

PATIENT
  Sex: Female
  Weight: 59.9 kg

DRUGS (3)
  1. IFOSFAMIDE [Suspect]
     Dosage: 8.1 G
  2. TAXOL [Suspect]
     Dosage: 230 MG
  3. OXYCODONE HCL [Concomitant]

REACTIONS (2)
  - HALLUCINATION [None]
  - CRYING [None]
